FAERS Safety Report 25971746 (Version 2)
Quarter: 2025Q4

REPORT INFORMATION
  Report Type: Spontaneous
  Country: US (occurrence: US)
  Receive Date: 20251029
  Receipt Date: 20251029
  Transmission Date: 20260117
  Serious: Yes (Hospitalization, Other)
  Sender: Atnahs Healthcare
  Company Number: US-ATNAHS-2025-PMNV-US001507

PATIENT

DRUGS (1)
  1. VALIUM [Suspect]
     Active Substance: DIAZEPAM
     Indication: Seizure
     Dosage: UNK
     Route: 065

REACTIONS (2)
  - Surgery [Unknown]
  - Constipation [Unknown]
